FAERS Safety Report 9591706 (Version 2)
Quarter: 2013Q4

REPORT INFORMATION
  Report Type: Spontaneous
  Country: US (occurrence: US)
  Receive Date: 20131004
  Receipt Date: 20131004
  Transmission Date: 20140711
  Serious: No
  Sender: FDA-Public Use
  Company Number: US-AMGEN-USASP2012064855

PATIENT
  Age: 29 Year
  Sex: Female
  Weight: 61.22 kg

DRUGS (2)
  1. ENBREL [Suspect]
     Indication: RHEUMATOID ARTHRITIS
     Dosage: 50 MG, QWK
     Route: 058
  2. PREDNISONE [Concomitant]
     Dosage: 10 MG, UNK

REACTIONS (7)
  - Injection site erythema [Unknown]
  - Injection site warmth [Unknown]
  - Injection site rash [Unknown]
  - Injection site pruritus [Unknown]
  - Alopecia [Unknown]
  - Systemic lupus erythematosus [Unknown]
  - Pruritus generalised [Recovered/Resolved]
